FAERS Safety Report 7272632-7 (Version None)
Quarter: 2011Q1

REPORT INFORMATION
  Report Type: 
  Country: None (occurrence: None)
  Receive Date: 20110127
  Receipt Date: 20110117
  Transmission Date: 20110831
  Serious: Yes (Hospitalization, Other)
  Sender: FDA-Public Use
  Company Number: GB-ACCORD-004736

PATIENT
  Age: 49 Year
  Sex: Female
  Weight: 53 kg

DRUGS (1)
  1. PACLITAXEL [Suspect]
     Indication: GASTRIC CANCER STAGE IV
     Dosage: 80.00-MG/M2-1.0 WEEKS

REACTIONS (3)
  - DEEP VEIN THROMBOSIS [None]
  - OFF LABEL USE [None]
  - PULMONARY EMBOLISM [None]
